FAERS Safety Report 4658125-1 (Version None)
Quarter: 2005Q2

REPORT INFORMATION
  Report Type: 
  Country: None (occurrence: None)
  Receive Date: 20050509
  Receipt Date: 20050427
  Transmission Date: 20051028
  Serious: No
  Sender: FDA-Public Use
  Company Number: 18047

PATIENT

DRUGS (2)
  1. CYTARABINE [Suspect]
  2. CYTARABINE [Suspect]

REACTIONS (1)
  - MEDICATION ERROR [None]
